FAERS Safety Report 9350994 (Version 2)
Quarter: 2013Q3

REPORT INFORMATION
  Report Type: Spontaneous
  Country: US (occurrence: US)
  Receive Date: 20130617
  Receipt Date: 20130704
  Transmission Date: 20140515
  Serious: Yes (Other)
  Sender: FDA-Public Use
  Company Number: US-BRISTOL-MYERS SQUIBB COMPANY-18989574

PATIENT
  Age: 94 Year
  Sex: Female
  Weight: 83.44 kg

DRUGS (12)
  1. ELIQUIS [Suspect]
     Indication: ATRIAL FIBRILLATION
     Dates: start: 20130506
  2. BYSTOLIC [Concomitant]
  3. CATAPRES [Concomitant]
  4. FUROSEMIDE [Concomitant]
     Dosage: 2 PILLS QAM
  5. SENSIPAR [Concomitant]
  6. VITAMIN B12 [Concomitant]
  7. MULTIVITAMIN [Concomitant]
  8. NEXIUM [Concomitant]
  9. FOLIC ACID [Concomitant]
  10. BENICAR [Concomitant]
  11. AMLODIPINE [Concomitant]
     Dosage: QAM
  12. ASPIRIN [Concomitant]

REACTIONS (6)
  - Congenital cystic kidney disease [Unknown]
  - Local swelling [Unknown]
  - Drug dose omission [Unknown]
  - Eye swelling [Unknown]
  - Dyspnoea [Unknown]
  - Dizziness [Unknown]
